FAERS Safety Report 20032934 (Version 1)
Quarter: 2021Q4

REPORT INFORMATION
  Report Type: Spontaneous
  Country: ZA (occurrence: ZA)
  Receive Date: 20211104
  Receipt Date: 20211104
  Transmission Date: 20220303
  Serious: Yes (Hospitalization, Other)
  Sender: FDA-Public Use
  Company Number: ZA-NOVOPROD-861519

PATIENT
  Age: 55 Year
  Sex: Female

DRUGS (4)
  1. ESTRADIOL HEMIHYDRATE [Suspect]
     Active Substance: ESTRADIOL HEMIHYDRATE
     Indication: Hormone therapy
     Dosage: 1 MG
     Route: 048
  2. BONIVA [Concomitant]
     Active Substance: IBANDRONATE SODIUM
     Indication: Osteoporosis
     Dosage: 150 MG
     Route: 048
  3. ATORVASTATIN [Concomitant]
     Active Substance: ATORVASTATIN
     Indication: Blood cholesterol abnormal
     Dosage: 240 MG
     Route: 048
  4. PANTOCID [MONALAZONE DISODIUM] [Concomitant]
     Indication: Ulcer
     Dosage: 40 MG
     Route: 048

REACTIONS (2)
  - Blood pressure decreased [Unknown]
  - Malaria [Unknown]
